FAERS Safety Report 16206654 (Version 1)
Quarter: 2019Q2

REPORT INFORMATION
  Report Type: Spontaneous
  Country: US (occurrence: US)
  Receive Date: 20190313
  Receipt Date: 20190313
  Transmission Date: 20190711
  Serious: No
  Sender: FDA-Public Use
  Company Number: None

PATIENT
  Age: 47 Year
  Sex: Female
  Weight: 185.97 kg

DRUGS (1)
  1. OTEZLA TABLET  30 MG TABLET 60^S, 30 MG [Suspect]
     Active Substance: APREMILAST
     Indication: PSORIASIS
     Dosage: AS DIRECTED
     Route: 048
     Dates: start: 201612

REACTIONS (2)
  - Device related infection [None]
  - Dialysis [None]
